FAERS Safety Report 15120446 (Version 2)
Quarter: 2018Q3

REPORT INFORMATION
  Report Type: Spontaneous
  Country: US (occurrence: US)
  Receive Date: 20180709
  Receipt Date: 20180727
  Transmission Date: 20181010
  Serious: Yes (Hospitalization)
  Sender: FDA-Public Use
  Company Number: US-JNJFOC-20180634634

PATIENT
  Age: 32 Year
  Sex: Male
  Weight: 89.36 kg

DRUGS (1)
  1. RISPERDAL CONSTA [Suspect]
     Active Substance: RISPERIDONE
     Indication: SCHIZOAFFECTIVE DISORDER
     Route: 030
     Dates: end: 20180614

REACTIONS (2)
  - Schizoaffective disorder [Unknown]
  - Device leakage [Unknown]

NARRATIVE: CASE EVENT DATE: 2017
